FAERS Safety Report 8333833-X (Version None)
Quarter: 2012Q1

REPORT INFORMATION
  Report Type: 
  Country: None (occurrence: None)
  Receive Date: 20120328
  Receipt Date: 20100901
  Transmission Date: 20120608
  Serious: Yes (Other)
  Sender: FDA-Public Use
  Company Number: PHHY2010US57906

PATIENT
  Age: 63 Year
  Sex: Female

DRUGS (2)
  1. VALTURNA [Suspect]
     Dosage: 150/160 ONCE DAY, ORAL
     Route: 048
  2. JANUVIA [Concomitant]

REACTIONS (1)
  - BLOOD PRESSURE DECREASED [None]
